FAERS Safety Report 6473229-9 (Version None)
Quarter: 2009Q4

REPORT INFORMATION
  Report Type: 
  Country: None (occurrence: None)
  Receive Date: 20091204
  Receipt Date: 20080527
  Transmission Date: 20100525
  Serious: Yes (Other)
  Sender: FDA-Public Use
  Company Number: GB-ELI_LILLY_AND_COMPANY-GB200805005569

PATIENT
  Age: 28 Year
  Sex: Male

DRUGS (5)
  1. ZYPREXA [Suspect]
     Indication: PSYCHOTIC DISORDER
     Dosage: 55 MG, DAILY (1/D)
     Route: 048
  2. CLOZARIL [Interacting]
     Indication: SCHIZOPHRENIA
     Dosage: 12.5 MG, DAILY (1/D)
     Route: 048
     Dates: start: 20061117, end: 20061101
  3. CLOZARIL [Interacting]
     Dosage: 6.25 MG, DAILY (1/D)
     Route: 048
     Dates: start: 20061122, end: 20061123
  4. CLOZARIL [Interacting]
     Dosage: 12.5 MG, DAILY (1/D)
     Route: 048
     Dates: start: 20061124, end: 20060101
  5. SIMVASTATIN [Concomitant]

REACTIONS (3)
  - DRUG INTERACTION [None]
  - OVERDOSE [None]
  - VOMITING [None]
